FAERS Safety Report 4337457-0 (Version None)
Quarter: 2004Q2

REPORT INFORMATION
  Report Type: 
  Country: None (occurrence: None)
  Receive Date: 20040407
  Receipt Date: 20040329
  Transmission Date: 20050107
  Serious: Yes (Other)
  Sender: FDA-Public Use
  Company Number: 081-1343-M0100029

PATIENT
  Age: 21 Year
  Sex: Female

DRUGS (3)
  1. VIRACEPT [Suspect]
     Indication: HIV INFECTION
     Dosage: 2250 MG (DAILY), ORAL
     Route: 048
     Dates: start: 20000803
  2. EPIVIR [Suspect]
     Indication: HIV INFECTION
     Dosage: 300 MG (DAILY), ORAL
     Route: 048
     Dates: start: 20000803
  3. RETROVIR [Suspect]
     Indication: HIV INFECTION
     Dosage: 300 MG (DAILY), ORAL
     Route: 048
     Dates: start: 20000803

REACTIONS (4)
  - CAESAREAN SECTION [None]
  - COMPLICATIONS OF MATERNAL EXPOSURE TO THERAPEUTIC DRUGS [None]
  - MATERNAL DRUGS AFFECTING FOETUS [None]
  - SMALL FOR DATES BABY [None]
